FAERS Safety Report 5293532-8 (Version None)
Quarter: 2007Q2

REPORT INFORMATION
  Report Type: 
  Country: None (occurrence: None)
  Receive Date: 20070411
  Receipt Date: 20070405
  Transmission Date: 20071010
  Serious: Yes (Hospitalization)
  Sender: FDA-Public Use
  Company Number: FR-GLAXOSMITHKLINE-B0465248A

PATIENT
  Age: 86 Year
  Sex: Female

DRUGS (3)
  1. ARIXTRA [Suspect]
     Indication: PHLEBITIS
     Dosage: 7.5MG PER DAY
     Route: 058
     Dates: start: 20070301, end: 20070310
  2. KARDEGIC [Suspect]
     Dosage: 160MG PER DAY
     Route: 048
     Dates: end: 20070308
  3. PSYCHOTROPIC DRUGS [Concomitant]
     Indication: BIPOLAR I DISORDER

REACTIONS (4)
  - ABDOMINAL HAEMATOMA [None]
  - ANAEMIA [None]
  - RENAL FAILURE ACUTE [None]
  - SOMNOLENCE [None]
